FAERS Safety Report 8845488 (Version 1)
Quarter: 2012Q4

REPORT INFORMATION
  Report Type: 
  Country: US (occurrence: US)
  Receive Date: 20121017
  Receipt Date: 20121017
  Transmission Date: 20130627
  Serious: No
  Sender: FDA-Public Use
  Company Number: US-PFIZER INC-2012253089

PATIENT
  Age: 74 Year
  Sex: Female

DRUGS (4)
  1. DOXYCYCLINE HYCLATE [Suspect]
     Dosage: UNK
     Route: 048
  2. SUPRAX [Suspect]
     Dosage: UNK
     Route: 048
  3. CIPROFLOXACIN [Suspect]
     Dosage: UNK
     Route: 048
  4. LEVAQUIN [Suspect]
     Dosage: UNK
     Route: 048

REACTIONS (2)
  - Drug hypersensitivity [Unknown]
  - Rash [Unknown]
